FAERS Safety Report 7829127-9 (Version None)
Quarter: 2011Q4

REPORT INFORMATION
  Report Type: 
  Country: None (occurrence: None)
  Receive Date: 20111020
  Receipt Date: 20111007
  Transmission Date: 20120403
  Serious: Yes (Other)
  Sender: FDA-Public Use
  Company Number: PHEH2011US06283

PATIENT
  Sex: Female

DRUGS (10)
  1. NARCO [Concomitant]
     Dosage: UNK
  2. MULTI-VITAMINS [Concomitant]
     Dosage: UNK UKN, UNK
  3. ROBAXIN [Concomitant]
     Dosage: UNK
  4. DIOVAN HCT [Suspect]
     Dosage: 1 DF, QD (80 MG OF VALS AND 12.5 MG OF HYD)
  5. IMODIUM [Concomitant]
     Dosage: UNK
  6. PROTONIX [Concomitant]
     Dosage: UNK
  7. DIOVAN HCT [Suspect]
     Dosage: 1 DF, QD (160 MG OF VALS AND 25 MG OF HYD)
  8. UNKNOWN BP MEDICATION [Suspect]
     Dosage: 1 DF, QD
  9. LISINOPRIL [Concomitant]
     Dosage: UNK
  10. VESICARE [Concomitant]
     Dosage: UNK

REACTIONS (3)
  - HIATUS HERNIA [None]
  - CARDIAC MURMUR [None]
  - DIAPHRAGMATIC HERNIA [None]
